FAERS Safety Report 24799638 (Version 1)
Quarter: 2025Q1

REPORT INFORMATION
  Report Type: Spontaneous
  Country: IN (occurrence: IN)
  Receive Date: 20250102
  Receipt Date: 20250102
  Transmission Date: 20250409
  Serious: Yes (Other)
  Sender: GILEAD
  Company Number: IN-GILEAD-2024-0698497

PATIENT
  Age: 28 Year
  Sex: Female

DRUGS (6)
  1. VIREAD [Suspect]
     Active Substance: TENOFOVIR DISOPROXIL FUMARATE
     Indication: HIV infection
     Route: 065
     Dates: start: 2011
  2. LAMIVUDINE [Concomitant]
     Active Substance: LAMIVUDINE
  3. NEVIRAPINE [Concomitant]
     Active Substance: NEVIRAPINE
  4. ZIDOVUDINE [Concomitant]
     Active Substance: ZIDOVUDINE
  5. DOLUTEGRAVIR [Concomitant]
     Active Substance: DOLUTEGRAVIR
  6. HYDROXYCHLOROQUINE [Concomitant]
     Active Substance: HYDROXYCHLOROQUINE

REACTIONS (3)
  - Stillbirth [Recovered/Resolved]
  - Systemic lupus erythematosus [Unknown]
  - Maternal exposure during pregnancy [Recovered/Resolved]
